FAERS Safety Report 7540654-4 (Version None)
Quarter: 2011Q2

REPORT INFORMATION
  Report Type: 
  Country: None (occurrence: None)
  Receive Date: 20110610
  Receipt Date: 20110603
  Transmission Date: 20111010
  Serious: Yes (Hospitalization, Other)
  Sender: FDA-Public Use
  Company Number: PHHY2011TW49051

PATIENT
  Age: 42 Year
  Sex: Male

DRUGS (5)
  1. FLUOXETINE HCL [Suspect]
     Dosage: 80 MG/DAY
  2. ARIPIPRAZOLE [Interacting]
     Dosage: 10 MG, UNK
  3. ARIPIPRAZOLE [Interacting]
     Dosage: 15 MG/DAY
  4. ARIPIPRAZOLE [Interacting]
     Dosage: 10 MG/DAY
  5. ARIPIPRAZOLE [Interacting]
     Dosage: 20 MG/DAY

REACTIONS (4)
  - LEUKOPENIA [None]
  - NEUTROPENIA [None]
  - DRUG INTERACTION [None]
  - HALLUCINATION [None]
